FAERS Safety Report 4611451-4 (Version None)
Quarter: 2005Q1

REPORT INFORMATION
  Report Type: 
  Country: None (occurrence: None)
  Receive Date: 20050317
  Receipt Date: 20050307
  Transmission Date: 20050727
  Serious: Yes (Other)
  Sender: FDA-Public Use
  Company Number: US-JNJFOC-20040907619

PATIENT
  Sex: Female
  Weight: 99.79 kg

DRUGS (15)
  1. REMICADE [Suspect]
     Indication: RHEUMATOID ARTHRITIS
     Dosage: 300-600 MG
     Route: 042
  2. VERELAN PM [Concomitant]
  3. TOPROL-XL [Concomitant]
  4. BEXTRA [Concomitant]
     Indication: RHEUMATOID ARTHRITIS
  5. PREVACID [Concomitant]
  6. ASPIRIN [Concomitant]
  7. CALCIUM GLUCONATE [Concomitant]
  8. MULTI-VITAMIN [Concomitant]
  9. MULTI-VITAMIN [Concomitant]
  10. MULTI-VITAMIN [Concomitant]
  11. MULTI-VITAMIN [Concomitant]
  12. MULTI-VITAMIN [Concomitant]
  13. MULTI-VITAMIN [Concomitant]
  14. MULTI-VITAMIN [Concomitant]
  15. MULTI-VITAMIN [Concomitant]

REACTIONS (1)
  - CHRONIC MYELOID LEUKAEMIA [None]
